FAERS Safety Report 6692164-4 (Version None)
Quarter: 2010Q2

REPORT INFORMATION
  Report Type: 
  Country: None (occurrence: None)
  Receive Date: 20100422
  Receipt Date: 20090424
  Transmission Date: 20101027
  Serious: No
  Sender: FDA-Public Use
  Company Number: US-ASTRAZENECA-2009UW04813

PATIENT
  Age: 74 Year
  Sex: Female

DRUGS (1)
  1. TOPROL-XL [Suspect]
     Indication: HYPERTENSION
     Route: 048
     Dates: end: 20090201

REACTIONS (9)
  - ADVERSE REACTION [None]
  - ANXIETY [None]
  - CARDIAC DISORDER [None]
  - CHEST DISCOMFORT [None]
  - CRYING [None]
  - HEPATIC STEATOSIS [None]
  - ILL-DEFINED DISORDER [None]
  - MALAISE [None]
  - NERVOUSNESS [None]
